FAERS Safety Report 5814119-1 (Version None)
Quarter: 2008Q3

REPORT INFORMATION
  Report Type: 
  Country: None (occurrence: None)
  Receive Date: 20080717
  Receipt Date: 20080707
  Transmission Date: 20090109
  Serious: Yes (Hospitalization)
  Sender: FDA-Public Use
  Company Number: FR-PFIZER INC-2008056693

PATIENT
  Sex: Female

DRUGS (15)
  1. DALACINE IV [Suspect]
     Route: 042
  2. TRIFLUCAN [Suspect]
     Dates: start: 20080527, end: 20080611
  3. CHLORAMPHENICOL [Suspect]
     Route: 042
  4. KEPPRA [Suspect]
     Dates: start: 20080315, end: 20080611
  5. AMOXICILLIN [Suspect]
     Dates: start: 20080404, end: 20080612
  6. BACLOFEN [Suspect]
     Dates: start: 20080411, end: 20080612
  7. RIFAMPICIN [Concomitant]
  8. METRONIDAZOLE HCL [Concomitant]
  9. LOVENOX [Concomitant]
  10. TRAMADOL HCL [Concomitant]
  11. DIOSMECTITE [Concomitant]
  12. TARDYFERON [Concomitant]
  13. ZOPHREN [Concomitant]
  14. ACETAMINOPHEN [Concomitant]
     Route: 051
  15. POLYMYCIN B SULFATE [Concomitant]

REACTIONS (3)
  - LACTIC ACIDOSIS [None]
  - OLIGURIA [None]
  - RENAL FAILURE [None]
